FAERS Safety Report 12868609 (Version 2)
Quarter: 2016Q4

REPORT INFORMATION
  Report Type: Spontaneous
  Country: JP (occurrence: JP)
  Receive Date: 20161021
  Receipt Date: 20161024
  Transmission Date: 20170207
  Serious: Yes (Other)
  Sender: FDA-Public Use
  Company Number: JP-APOTEX-2016AP013295

PATIENT
  Age: 40 Year
  Sex: Female

DRUGS (5)
  1. MUCODYNE [Concomitant]
     Active Substance: CARBOCYSTEINE
     Dosage: UNK
     Route: 065
  2. PAXIL [Suspect]
     Active Substance: PAROXETINE HYDROCHLORIDE
     Indication: PRODUCT USED FOR UNKNOWN INDICATION
     Dosage: 10 MG, 1D
     Route: 065
     Dates: start: 20161005
  3. RIZE (JAPAN) [Concomitant]
     Dosage: 5 MG, TID
     Route: 065
  4. NAUZELIN [Concomitant]
     Active Substance: DOMPERIDONE
     Indication: PRODUCT USED FOR UNKNOWN INDICATION
     Dosage: UNK
     Route: 065
  5. TRANSAMIN [Concomitant]
     Active Substance: TRANEXAMIC ACID
     Dosage: UNK
     Route: 065

REACTIONS (8)
  - Abnormal sleep-related event [Unknown]
  - Somnolence [Unknown]
  - Malaise [Unknown]
  - Night sweats [Recovered/Resolved]
  - Abnormal dreams [Unknown]
  - Neuroleptic malignant syndrome [Unknown]
  - Myalgia [Unknown]
  - Tremor [Recovered/Resolved]

NARRATIVE: CASE EVENT DATE: 20161006
